FAERS Safety Report 17365346 (Version 1)
Quarter: 2020Q1

REPORT INFORMATION
  Report Type: Spontaneous
  Country: TH (occurrence: TH)
  Receive Date: 20200204
  Receipt Date: 20200204
  Transmission Date: 20200409
  Serious: Yes (Other)
  Sender: FDA-Public Use
  Company Number: TH-ASTELLAS-2020US003132

PATIENT
  Age: 83 Year
  Sex: Male

DRUGS (1)
  1. XTANDI [Suspect]
     Active Substance: ENZALUTAMIDE
     Indication: HORMONE-REFRACTORY PROSTATE CANCER
     Dosage: UNK, UNKNOWN FREQ.
     Route: 065

REACTIONS (2)
  - Malignant neoplasm progression [Unknown]
  - Prostatic specific antigen increased [Unknown]
